FAERS Safety Report 9206028 (Version 1)
Quarter: 2013Q2

REPORT INFORMATION
  Report Type: Spontaneous
  Country: CN (occurrence: CN)
  Receive Date: 20130403
  Receipt Date: 20130403
  Transmission Date: 20140414
  Serious: Yes (Hospitalization)
  Sender: FDA-Public Use
  Company Number: CN-JNJFOC-20130313362

PATIENT
  Age: 22 Year
  Sex: Male

DRUGS (5)
  1. INVEGA SUSTENNA [Suspect]
     Indication: SCHIZOPHRENIA
     Route: 030
     Dates: start: 20130226, end: 20130226
  2. INVEGA SUSTENNA [Suspect]
     Indication: SCHIZOPHRENIA
     Route: 030
     Dates: start: 20130129, end: 20130129
  3. INVEGA SUSTENNA [Suspect]
     Indication: SCHIZOPHRENIA
     Route: 030
     Dates: start: 20130122, end: 20130122
  4. QUETIAPINE [Suspect]
     Indication: PSYCHOTIC DISORDER
     Route: 065
     Dates: start: 20130305, end: 20130312
  5. SERTRALINE [Suspect]
     Indication: PSYCHOTIC DISORDER
     Route: 065
     Dates: start: 20130305, end: 20130312

REACTIONS (2)
  - Neuroleptic malignant syndrome [Recovering/Resolving]
  - Coma [Not Recovered/Not Resolved]
